FAERS Safety Report 9737023 (Version 1)
Quarter: 2013Q4

REPORT INFORMATION
  Report Type: Spontaneous
  Country: US (occurrence: US)
  Receive Date: 20131206
  Receipt Date: 20131206
  Transmission Date: 20140711
  Serious: No
  Sender: FDA-Public Use
  Company Number: US-GILEAD-2009-0024217

PATIENT
  Sex: Female
  Weight: 78.47 kg

DRUGS (18)
  1. LETAIRIS [Suspect]
     Indication: PULMONARY ARTERIAL HYPERTENSION
     Route: 048
     Dates: start: 20071205
  2. FUROSEMIDE [Concomitant]
  3. METOLAZONE [Concomitant]
  4. ALDACTONE [Concomitant]
  5. ASPIRIN [Concomitant]
  6. PRINIVIL [Concomitant]
  7. SIMVASTATIN [Concomitant]
  8. K-DUR [Concomitant]
  9. POTASSIUM [Concomitant]
  10. PAXIL [Concomitant]
  11. SENNA [Concomitant]
  12. COLACE [Concomitant]
  13. PROZAC [Concomitant]
  14. ALBUTEROL [Concomitant]
  15. TYLENOL [Concomitant]
  16. NASONEX [Concomitant]
  17. AFRIN [Concomitant]
  18. MULTIVITAMIN [Concomitant]

REACTIONS (2)
  - Myalgia [Unknown]
  - Muscle spasms [Unknown]
